FAERS Safety Report 10067520 (Version 2)
Quarter: 2014Q2

REPORT INFORMATION
  Report Type: Spontaneous
  Country: DE (occurrence: DE)
  Receive Date: 20140409
  Receipt Date: 20140509
  Transmission Date: 20141212
  Serious: Yes (Death)
  Sender: FDA-Public Use
  Company Number: DE-ELI_LILLY_AND_COMPANY-DE201404000981

PATIENT
  Sex: 0

DRUGS (10)
  1. CYMBALTA [Suspect]
     Indication: PRODUCT USED FOR UNKNOWN INDICATION
     Dosage: 60MG, DAILY
     Route: 064
  2. CYMBALTA [Suspect]
     Indication: PRODUCT USED FOR UNKNOWN INDICATION
     Dosage: 60MG, DAILY
     Route: 064
  3. NEURONTIN [Concomitant]
     Dosage: 600 MG, QD
     Route: 064
  4. NEURONTIN [Concomitant]
     Dosage: 600 MG, QD
     Route: 064
  5. TRAZODONE [Concomitant]
     Dosage: 50 MG, QD
     Route: 064
  6. TRAZODONE [Concomitant]
     Dosage: 50 MG, QD
     Route: 064
  7. RUPATADINE [Concomitant]
     Route: 064
  8. RUPATADINE [Concomitant]
     Route: 064
  9. VAGIFEM [Concomitant]
     Dosage: UNK, UNKNOWN
     Route: 064
  10. VAGIFEM [Concomitant]
     Dosage: UNK, UNKNOWN
     Route: 064

REACTIONS (2)
  - Stillbirth [Fatal]
  - Foetal exposure during pregnancy [Unknown]
